FAERS Safety Report 25623755 (Version 3)
Quarter: 2025Q3

REPORT INFORMATION
  Report Type: Spontaneous
  Country: CA (occurrence: CA)
  Receive Date: 20250730
  Receipt Date: 20250924
  Transmission Date: 20251020
  Serious: Yes (Other)
  Sender: PFIZER
  Company Number: CA-PFIZER INC-202500152497

PATIENT
  Age: 29 Year
  Sex: Male
  Weight: 102 kg

DRUGS (4)
  1. IXIFI [Suspect]
     Active Substance: INFLIXIMAB-QBTX
     Indication: Crohn^s disease
     Route: 042
     Dates: start: 20250628
  2. IXIFI [Suspect]
     Active Substance: INFLIXIMAB-QBTX
     Route: 042
     Dates: start: 20250726
  3. IXIFI [Suspect]
     Active Substance: INFLIXIMAB-QBTX
     Route: 042
     Dates: start: 20250823
  4. IXIFI [Suspect]
     Active Substance: INFLIXIMAB-QBTX
     Route: 042
     Dates: start: 20250920

REACTIONS (3)
  - Uveitis [Not Recovered/Not Resolved]
  - Arthralgia [Not Recovered/Not Resolved]
  - Condition aggravated [Unknown]

NARRATIVE: CASE EVENT DATE: 20250628
